FAERS Safety Report 5999305-2 (Version None)
Quarter: 2008Q4

REPORT INFORMATION
  Report Type: 
  Country: None (occurrence: None)
  Receive Date: 20081215
  Receipt Date: 20080731
  Transmission Date: 20090506
  Serious: No
  Sender: FDA-Public Use
  Company Number: US-AMGEN-KDL298567

PATIENT
  Sex: Female

DRUGS (2)
  1. ENBREL [Suspect]
     Indication: RHEUMATOID ARTHRITIS
     Route: 058
     Dates: start: 20080727
  2. METHOTREXATE [Concomitant]
     Route: 048

REACTIONS (5)
  - BACK PAIN [None]
  - CATARACT [None]
  - MALAISE [None]
  - NAUSEA [None]
  - VOMITING [None]
